FAERS Safety Report 10551721 (Version 1)
Quarter: 2014Q4

REPORT INFORMATION
  Report Type: Spontaneous
  Country: US (occurrence: US)
  Receive Date: 20141029
  Receipt Date: 20141029
  Transmission Date: 20150529
  Serious: No
  Sender: FDA-Public Use
  Company Number: US-PFIZER INC-2014295496

PATIENT
  Age: 64 Year
  Sex: Male
  Weight: 109.21 kg

DRUGS (3)
  1. DICYCLOMINE [Suspect]
     Active Substance: DICYCLOMINE HYDROCHLORIDE
     Indication: BACTERIAL INFECTION
     Dosage: 10 MG, 2X/DAY
     Dates: start: 20141013
  2. PROMETHAZINE HYDROCHLORIDE. [Suspect]
     Active Substance: PROMETHAZINE HYDROCHLORIDE
     Indication: BACTERIAL INFECTION
     Dosage: 25 MG, AS NEEDED
     Dates: start: 20141013
  3. METRONIDAZOLE. [Suspect]
     Active Substance: METRONIDAZOLE
     Indication: BACTERIAL INFECTION
     Dosage: 500 MG, 2X/DAY
     Dates: start: 20141013

REACTIONS (1)
  - Drug ineffective [Unknown]

NARRATIVE: CASE EVENT DATE: 201410
